FAERS Safety Report 7136723-3 (Version None)
Quarter: 2010Q4

REPORT INFORMATION
  Report Type: 
  Country: None (occurrence: None)
  Receive Date: 20101118
  Receipt Date: 20101109
  Transmission Date: 20110411
  Serious: Yes (Hospitalization)
  Sender: FDA-Public Use
  Company Number: 020791

PATIENT
  Sex: Female

DRUGS (2)
  1. KEPPRA [Suspect]
     Dosage: (UPTITRATION), (1500 MG, 500MG - 0 - 1000MG)
     Dates: start: 20100729
  2. CONTRACEPTIVES NOS [Concomitant]

REACTIONS (1)
  - PULMONARY EMBOLISM [None]
